FAERS Safety Report 6725716-3 (Version None)
Quarter: 2010Q2

REPORT INFORMATION
  Report Type: 
  Country: None (occurrence: None)
  Receive Date: 20100512
  Receipt Date: 20100506
  Transmission Date: 20101027
  Serious: Yes (Hospitalization)
  Sender: FDA-Public Use
  Company Number: CAP10000152

PATIENT
  Age: 48 Year
  Sex: Female

DRUGS (7)
  1. ACTONEL [Suspect]
     Indication: OSTEOPOROSIS
     Dosage: 150 MG ONCE MONTHLY, ORAL
     Route: 048
     Dates: start: 20100308
  2. GLUCOSAMINE (GLUCOSAMINE) [Concomitant]
  3. VITAMIN B12 [Concomitant]
  4. CALCIUM (CALCIUM) [Concomitant]
  5. VITAMIN D [Concomitant]
  6. FLAXSEED OIL (LINUM USITATISSIMUM SEED OIL) [Concomitant]
  7. MULTIVITAMIN [Concomitant]

REACTIONS (4)
  - BACK PAIN [None]
  - C-REACTIVE PROTEIN INCREASED [None]
  - CHEST PAIN [None]
  - ELECTROCARDIOGRAM ST SEGMENT DEPRESSION [None]
